FAERS Safety Report 18457697 (Version 1)
Quarter: 2020Q4

REPORT INFORMATION
  Report Type: Spontaneous
  Country: GB (occurrence: GB)
  Receive Date: 20201103
  Receipt Date: 20201103
  Transmission Date: 20210114
  Serious: Yes (Death, Hospitalization, Other)
  Sender: FDA-Public Use
  Company Number: GB-AMGEN-GBRSP2020175087

PATIENT

DRUGS (3)
  1. MELPHALAN. [Suspect]
     Active Substance: MELPHALAN
     Indication: PLASMA CELL MYELOMA
     Dosage: UNK
     Route: 065
  2. CARFILZOMIB [Suspect]
     Active Substance: CARFILZOMIB
     Indication: PLASMA CELL MYELOMA
     Dosage: UNK
     Route: 065
  3. PREDNISONE. [Suspect]
     Active Substance: PREDNISONE
     Indication: PLASMA CELL MYELOMA
     Dosage: UNK
     Route: 065

REACTIONS (18)
  - Infective exacerbation of chronic obstructive airways disease [Fatal]
  - Sepsis [Fatal]
  - Cardiac failure congestive [Fatal]
  - Respiratory tract infection [Unknown]
  - Genitourinary tract infection [Unknown]
  - Second primary malignancy [Fatal]
  - Intestinal obstruction [Fatal]
  - Plasma cell myeloma [Fatal]
  - Myocardial infarction [Fatal]
  - Acute kidney injury [Fatal]
  - Creutzfeldt-Jakob disease [Fatal]
  - Off label use [Unknown]
  - Lower respiratory tract infection [Fatal]
  - Death [Fatal]
  - Respiratory failure [Fatal]
  - Device related infection [Fatal]
  - Infection [Fatal]
  - Pulmonary oedema [Fatal]
